FAERS Safety Report 15744770 (Version 1)
Quarter: 2018Q4

REPORT INFORMATION
  Report Type: Spontaneous
  Country: CZ (occurrence: CZ)
  Receive Date: 20181220
  Receipt Date: 20181220
  Transmission Date: 20190205
  Serious: Yes (Other)
  Sender: FDA-Public Use
  Company Number: CZ-MYLANLABS-2018M1095034

PATIENT
  Age: 62 Year
  Sex: Female

DRUGS (3)
  1. WARFARIN [Concomitant]
     Active Substance: WARFARIN
  2. ROSUVASTATIN. [Suspect]
     Active Substance: ROSUVASTATIN
     Indication: DYSLIPIDAEMIA
     Dosage: UNK
  3. ALIROCUMAB [Concomitant]
     Active Substance: ALIROCUMAB
     Dosage: 150 MILLIGRAM, BIWEEKLY
     Route: 058
     Dates: start: 20170713

REACTIONS (2)
  - Myalgia [Unknown]
  - Drug intolerance [Unknown]
